FAERS Safety Report 6993619-5 (Version None)
Quarter: 2010Q3

REPORT INFORMATION
  Report Type: 
  Country: None (occurrence: None)
  Receive Date: 20100917
  Receipt Date: 20080123
  Transmission Date: 20110219
  Serious: Yes (Other)
  Sender: FDA-Public Use
  Company Number: US-ASTRAZENECA-2006UW27597

PATIENT
  Age: 16456 Day
  Sex: Male
  Weight: 122.9 kg

DRUGS (20)
  1. SEROQUEL [Suspect]
     Route: 048
  2. RISPERDAL [Suspect]
     Dates: start: 20010510
  3. ZYPREXA [Suspect]
     Indication: BIPOLAR DISORDER
     Route: 048
     Dates: start: 20010101, end: 20040101
  4. ZYPREXA [Suspect]
     Indication: BIPOLAR I DISORDER
     Route: 048
     Dates: start: 20010101, end: 20040101
  5. ZYPREXA [Suspect]
     Route: 048
     Dates: start: 20021231
  6. ZYPREXA [Suspect]
     Route: 048
     Dates: start: 20021231
  7. WELLBUTRIN [Concomitant]
     Route: 048
     Dates: start: 19991026
  8. DESYREL [Concomitant]
     Dates: start: 20051018
  9. GLUCOPHAGE [Concomitant]
     Dates: start: 20051018
  10. DEPAKOTE [Concomitant]
     Route: 048
     Dates: start: 20051018
  11. GLUCOTROL [Concomitant]
     Dosage: 10 MG-20 MG
     Route: 048
     Dates: start: 20030905
  12. XANAX [Concomitant]
     Route: 048
     Dates: start: 19991026
  13. VYTORIN [Concomitant]
     Dosage: 20/10 THREE TIMES DAILY
     Dates: start: 20051018
  14. ASPIRIN [Concomitant]
     Dates: start: 20051018
  15. OXYCONTIN [Concomitant]
     Dosage: 30 MG TWO TO THREE TIMES A DAY
     Dates: start: 20010402
  16. LEXAPRO [Concomitant]
     Dosage: 10 MG-20 MG
     Dates: start: 20061016
  17. CYMBALTA [Concomitant]
     Dates: start: 20061229
  18. NEURONTIN [Concomitant]
     Route: 048
     Dates: start: 20010402
  19. VIAGRA [Concomitant]
     Route: 048
     Dates: start: 19991026
  20. LITHIUM CARBONATE [Concomitant]
     Dosage: 300 MG-1200 MG
     Route: 048
     Dates: start: 20010402

REACTIONS (5)
  - DIABETES MELLITUS [None]
  - DIABETES MELLITUS INADEQUATE CONTROL [None]
  - ERECTILE DYSFUNCTION [None]
  - INSULIN-REQUIRING TYPE 2 DIABETES MELLITUS [None]
  - TYPE 2 DIABETES MELLITUS [None]
